FAERS Safety Report 8177801-X (Version None)
Quarter: 2012Q1

REPORT INFORMATION
  Report Type: 
  Country: None (occurrence: None)
  Receive Date: 20120301
  Receipt Date: 20120227
  Transmission Date: 20120608
  Serious: Yes (Other)
  Sender: FDA-Public Use
  Company Number: JP-PFIZER INC-2012029712

PATIENT
  Age: 85 Year
  Sex: Female

DRUGS (9)
  1. CLINORIL [Concomitant]
     Indication: BACK PAIN
     Dosage: 100 UG, 2X/DAY
     Route: 048
     Dates: start: 20101108
  2. NEO VITACAIN [Concomitant]
     Indication: BACK PAIN
     Dosage: 5 ML, UNK
     Dates: start: 20101215
  3. OPALMON [Concomitant]
     Indication: PAIN IN EXTREMITY
     Dosage: 10 UG, 2X/DAY
     Route: 048
     Dates: start: 20101108
  4. ALENDRONATE SODIUM [Concomitant]
     Indication: OSTEOPOROSIS
     Dosage: 35 MG, WEEKLY
     Route: 048
     Dates: start: 20101108
  5. FAMOTIDINE [Concomitant]
     Indication: GASTROOESOPHAGEAL REFLUX DISEASE
     Dosage: 20 MG, 2X/DAY
     Route: 048
     Dates: start: 20101108
  6. LYRICA [Suspect]
     Dosage: 75 MG, 2X/DAY
     Route: 048
     Dates: start: 20110801
  7. CLINORIL [Concomitant]
     Indication: PAIN IN EXTREMITY
  8. LYRICA [Suspect]
     Indication: NERVOUS SYSTEM DISORDER
     Dosage: 75 MG, 1X/DAY
     Route: 048
     Dates: start: 20110711, end: 20110731
  9. KEISHIKASHAKUYAKUDAIOUTOU [Concomitant]
     Indication: MUSCLE SPASMS
     Dosage: 2 G, 1X/DAY
     Dates: start: 20110202

REACTIONS (1)
  - VISUAL FIELD DEFECT [None]
